FAERS Safety Report 9897905 (Version 2)
Quarter: 2014Q1

REPORT INFORMATION
  Report Type: Spontaneous
  Country: US (occurrence: US)
  Receive Date: 20140214
  Receipt Date: 20140225
  Transmission Date: 20141002
  Serious: No
  Sender: FDA-Public Use
  Company Number: US-PFIZER INC-2014040160

PATIENT
  Age: 54 Year
  Sex: Female

DRUGS (1)
  1. LYRICA [Suspect]
     Dosage: 75 MG, 3X/DAY
     Route: 048

REACTIONS (2)
  - Malaise [Unknown]
  - Fibromyalgia [Unknown]
